FAERS Safety Report 15669200 (Version 1)
Quarter: 2018Q4

REPORT INFORMATION
  Report Type: Spontaneous
  Country: US (occurrence: US)
  Receive Date: 20181129
  Receipt Date: 20181129
  Transmission Date: 20190205
  Serious: No
  Sender: FDA-Public Use
  Company Number: US-JNJFOC-20181043980

PATIENT
  Age: 10 Decade
  Sex: Female

DRUGS (2)
  1. TYLENOL EXTRA STRENGTH [Suspect]
     Active Substance: ACETAMINOPHEN
     Indication: PRODUCT USED FOR UNKNOWN INDICATION
     Dosage: EVERYDAY ONCE IN THE MORNING AND ONCE AT NIGHT  FOR ABOUT A YEAR AND A HALF
     Route: 048
  2. TYLENOL EXTRA STRENGTH [Suspect]
     Active Substance: ACETAMINOPHEN
     Route: 048

REACTIONS (4)
  - Drug effect incomplete [Unknown]
  - Chest pain [Unknown]
  - Abdominal discomfort [Unknown]
  - Incorrect product administration duration [Unknown]
